FAERS Safety Report 6834821-2 (Version None)
Quarter: 2010Q3

REPORT INFORMATION
  Report Type: 
  Country: None (occurrence: None)
  Receive Date: 20100712
  Receipt Date: 20070613
  Transmission Date: 20110219
  Serious: Yes (Other)
  Sender: FDA-Public Use
  Company Number: US-PFIZER INC-2007033856

PATIENT
  Sex: Female
  Weight: 47.6 kg

DRUGS (8)
  1. CHANTIX [Suspect]
     Indication: SMOKING CESSATION THERAPY
     Dates: start: 20070401
  2. OMEPRAZOLE [Concomitant]
     Route: 048
  3. AMLODIPINE [Concomitant]
  4. FOLIC ACID [Concomitant]
  5. METOPROLOL [Concomitant]
  6. FISH OIL [Concomitant]
  7. CALCIUM [Concomitant]
  8. CITALOPRAM HYDROBROMIDE [Concomitant]

REACTIONS (5)
  - ABDOMINAL DISCOMFORT [None]
  - ABDOMINAL PAIN UPPER [None]
  - COELIAC DISEASE [None]
  - NAUSEA [None]
  - WEIGHT DECREASED [None]
